FAERS Safety Report 6574335-0 (Version None)
Quarter: 2010Q1

REPORT INFORMATION
  Report Type: 
  Country: None (occurrence: None)
  Receive Date: 20100201
  Receipt Date: 20100119
  Transmission Date: 20100710
  Serious: Yes (Disabling)
  Sender: FDA-Public Use
  Company Number: 2010AL000529

PATIENT
  Sex: Female

DRUGS (10)
  1. CITALOPRAM HYDROBROMIDE TABLETS, 40 MG (PUREPAC) (CITALOPRAM HYDROBROM [Suspect]
     Dosage: PO
     Route: 048
     Dates: start: 20001201
  2. FLUOXETINE [Suspect]
     Dosage: PO
     Route: 048
     Dates: start: 20000126
  3. MIRTAZAPINE [Suspect]
     Dates: start: 20010730
  4. AMITRIPTYLINE HCL [Concomitant]
  5. LOFEPRAMIDE [Concomitant]
  6. DOTHIEPIN HYDROCHLORIDE [Concomitant]
  7. PAROXETINE HCL [Concomitant]
  8. VENLAFAXINE [Concomitant]
  9. LOSARTAN POTASSIUM [Concomitant]
  10. OMEPRAZOLE [Concomitant]

REACTIONS (1)
  - BLEPHARITIS [None]
